FAERS Safety Report 8389100-1 (Version None)
Quarter: 2012Q2

REPORT INFORMATION
  Report Type: 
  Country: None (occurrence: None)
  Receive Date: 20120528
  Receipt Date: 20120522
  Transmission Date: 20120825
  Serious: Yes (Death, Disabling, Other)
  Sender: FDA-Public Use
  Company Number: PHHY2012SD020117

PATIENT
  Sex: Male
  Weight: 71 kg

DRUGS (2)
  1. GLEEVEC [Suspect]
     Indication: CHRONIC MYELOID LEUKAEMIA
     Dosage: 400 MG, DAILY
     Route: 048
     Dates: start: 20051013
  2. GLEEVEC [Suspect]
     Dosage: 400 MG, DAILY
     Route: 048
     Dates: start: 20051020, end: 20111101

REACTIONS (4)
  - DEATH [None]
  - RENAL FAILURE [None]
  - HAEMOGLOBIN DECREASED [None]
  - WHITE BLOOD CELL COUNT INCREASED [None]
